FAERS Safety Report 18976094 (Version 1)
Quarter: 2021Q1

REPORT INFORMATION
  Report Type: Spontaneous
  Country: FR (occurrence: FR)
  Receive Date: 20210305
  Receipt Date: 20210305
  Transmission Date: 20210420
  Serious: Yes (Hospitalization)
  Sender: FDA-Public Use
  Company Number: FR-TEVA-2021-FR-1886594

PATIENT
  Age: 16 Year
  Sex: Female
  Weight: 50.9 kg

DRUGS (2)
  1. OFLOXACINE [Suspect]
     Active Substance: OFLOXACIN
     Indication: ESCHERICHIA INFECTION
     Dosage: 600 MG
     Route: 048
     Dates: start: 20200122, end: 20200422
  2. CEFTRIAXONE BASE [Suspect]
     Active Substance: CEFTRIAXONE
     Indication: ESCHERICHIA INFECTION
     Dosage: 2 GRAM
     Route: 042
     Dates: start: 20200121, end: 20200422

REACTIONS (1)
  - Cholelithiasis [Recovered/Resolved]

NARRATIVE: CASE EVENT DATE: 20200626
